FAERS Safety Report 9519313 (Version 1)
Quarter: 2013Q3

REPORT INFORMATION
  Report Type: Spontaneous
  Country: GB (occurrence: GB)
  Receive Date: 20130912
  Receipt Date: 20130912
  Transmission Date: 20140515
  Serious: Yes (Other)
  Sender: FDA-Public Use
  Company Number: GB-ASTRAZENECA-2013SE67029

PATIENT
  Age: 84 Year
  Sex: Male

DRUGS (1)
  1. LIDOCAINE [Suspect]
     Route: 031

REACTIONS (1)
  - Corneal opacity [Recovered/Resolved]
